FAERS Safety Report 11440082 (Version 1)
Quarter: 2015Q3

REPORT INFORMATION
  Report Type: Spontaneous
  Country: US (occurrence: US)
  Receive Date: 20150901
  Receipt Date: 20150901
  Transmission Date: 20151125
  Serious: No
  Sender: FDA-Public Use
  Company Number: US-ROCHE-728413

PATIENT
  Age: 50 Year
  Sex: Male

DRUGS (4)
  1. PEGASYS [Suspect]
     Active Substance: PEGINTERFERON ALFA-2A
     Indication: HEPATITIS C
     Route: 065
  2. PEGASYS [Suspect]
     Active Substance: PEGINTERFERON ALFA-2A
     Route: 065
  3. RIBAVIRIN. [Suspect]
     Active Substance: RIBAVIRIN
     Route: 065
  4. RIBAVIRIN. [Suspect]
     Active Substance: RIBAVIRIN
     Indication: HEPATITIS C
     Dosage: DAILY DIVIDED DOSE
     Route: 065

REACTIONS (8)
  - Vomiting [Unknown]
  - Hyperhidrosis [Unknown]
  - Injection site mass [Recovering/Resolving]
  - Injection site pain [Unknown]
  - Diarrhoea [Unknown]
  - Nausea [Unknown]
  - Hepatitis C [Unknown]
  - Headache [Unknown]

NARRATIVE: CASE EVENT DATE: 20100917
